FAERS Safety Report 19498108 (Version 1)
Quarter: 2021Q3

REPORT INFORMATION
  Report Type: Spontaneous
  Country: AU (occurrence: AU)
  Receive Date: 20210706
  Receipt Date: 20210706
  Transmission Date: 20211014
  Serious: Yes (Death)
  Sender: FDA-Public Use
  Company Number: AU-PFIZER INC-2021820947

PATIENT
  Sex: Female

DRUGS (16)
  1. SOTACOR [SOTALOL HYDROCHLORIDE] [Suspect]
     Active Substance: SOTALOL HYDROCHLORIDE
  2. TEMAZEPAM. [Suspect]
     Active Substance: TEMAZEPAM
  3. VARENICLINE TARTRATE [Suspect]
     Active Substance: VARENICLINE TARTRATE
  4. CODEINE [Suspect]
     Active Substance: CODEINE
     Indication: PAIN
  5. FLUOXETINE HYDROCHLORIDE. [Suspect]
     Active Substance: FLUOXETINE HYDROCHLORIDE
  6. PARACETAMOL [Suspect]
     Active Substance: ACETAMINOPHEN
  7. PREGABALIN. [Suspect]
     Active Substance: PREGABALIN
  8. ASPIRIN [ACETYLSALICYLIC ACID] [Suspect]
     Active Substance: ASPIRIN
  9. KAPANOL [Suspect]
     Active Substance: MORPHINE SULFATE
     Indication: PAIN
  10. NITRAZEPAM [Suspect]
     Active Substance: NITRAZEPAM
  11. ERYTHROMYCIN. [Suspect]
     Active Substance: ERYTHROMYCIN
     Dosage: UNK
  12. HALOTHANE. [Suspect]
     Active Substance: HALOTHANE
  13. NEXIUM I.V. [Suspect]
     Active Substance: ESOMEPRAZOLE SODIUM
  14. NARCOTINE [Suspect]
     Active Substance: NOSCAPINE
  15. MERSYNDOL [CODEINE PHOSPHATE;DOXYLAMINE SUCCINATE;PARACETAMOL] [Suspect]
     Active Substance: ACETAMINOPHEN\CODEINE PHOSPHATE\DOXYLAMINE SUCCINATE
     Indication: PAIN
  16. DOXYLAMINE SUCCINATE. [Suspect]
     Active Substance: DOXYLAMINE SUCCINATE
     Indication: PAIN

REACTIONS (3)
  - Toxicity to various agents [Fatal]
  - Product prescribing error [Fatal]
  - Accidental overdose [Fatal]

NARRATIVE: CASE EVENT DATE: 20190624
